FAERS Safety Report 6074553-4 (Version None)
Quarter: 2009Q1

REPORT INFORMATION
  Report Type: 
  Country: None (occurrence: None)
  Receive Date: 20090206
  Receipt Date: 20090127
  Transmission Date: 20090719
  Serious: Yes (Hospitalization)
  Sender: FDA-Public Use
  Company Number: OXYAPAP-2009-001

PATIENT
  Age: 34 Year
  Sex: Female

DRUGS (1)
  1. OXYCODONE AND ACETAMINOPHEN [Suspect]

REACTIONS (22)
  - AGGRESSION [None]
  - ANAEMIA [None]
  - ANAL SPHINCTER ATONY [None]
  - ANALGESIC DRUG LEVEL INCREASED [None]
  - CERVICAL MYELOPATHY [None]
  - DYSKINESIA [None]
  - ELECTROCARDIOGRAM QT PROLONGED [None]
  - GENERAL PHYSICAL HEALTH DETERIORATION [None]
  - HEPATIC FUNCTION ABNORMAL [None]
  - LEUKOPENIA [None]
  - MOVEMENT DISORDER [None]
  - MULTI-ORGAN DISORDER [None]
  - NECROSIS [None]
  - OVERDOSE [None]
  - QUADRIPARESIS [None]
  - QUADRIPLEGIA [None]
  - RENAL FAILURE [None]
  - SPINAL CORD INJURY [None]
  - SUICIDE ATTEMPT [None]
  - SWEAT GLAND DISORDER [None]
  - TRANSAMINASES INCREASED [None]
  - UNRESPONSIVE TO STIMULI [None]
